FAERS Safety Report 24138355 (Version 1)
Quarter: 2024Q3

REPORT INFORMATION
  Report Type: Spontaneous
  Country: NL (occurrence: NL)
  Receive Date: 20240725
  Receipt Date: 20240725
  Transmission Date: 20241017
  Serious: Yes (Hospitalization)
  Sender: TEVA
  Company Number: None

PATIENT
  Age: 73 Year
  Sex: Female
  Weight: 57.1 kg

DRUGS (10)
  1. PROPRANOLOL [Suspect]
     Active Substance: PROPRANOLOL HYDROCHLORIDE
     Indication: Atrial fibrillation
     Dosage: 2 X 2 PIECES PER DAY, PROPRANOLOL / BRAND NAME NOT SPECIFIED
     Route: 065
     Dates: start: 20240514, end: 20240624
  2. VENTOLIN [Concomitant]
     Active Substance: ALBUTEROL SULFATE
     Indication: Product used for unknown indication
     Dosage: INHALATION POWDER, 200 ?G/DOSE (MICROGRAMS PER DOSE), SALBUTAMOL INHALATION POWDER 200UG/DO / VEN...
  3. MEXILETINE [Concomitant]
     Active Substance: MEXILETINE
     Indication: Product used for unknown indication
     Dosage: CAPSULE, 100 MG (MILLIGRAM), MEXILETINE CAPSULE 83MG (=100MG MEXILETINE HCL) / BRAND NAME NOT SPE...
     Route: 065
  4. ATORVASTATIN [Concomitant]
     Active Substance: ATORVASTATIN
     Indication: Product used for unknown indication
     Dosage: TABLET, 40 MG (MILLIGRAM), ATORVASTATINE / BRAND NAME NOT SPECIFIED
     Route: 065
  5. RIVAROXABAN [Concomitant]
     Active Substance: RIVAROXABAN
     Indication: Product used for unknown indication
     Dosage: RIVAROXABAN / BRAND NAME NOT SPECIFIED
     Route: 065
  6. LOSARTAN [Concomitant]
     Active Substance: LOSARTAN
     Indication: Product used for unknown indication
     Dosage: LOSARTAN TABLET OF 25MG / BRAND NAME NOT SPECIFIED
     Route: 065
  7. ISOSORBIDEDINITRAAT [Concomitant]
     Indication: Product used for unknown indication
     Dosage: ISOSORBIDE DINITRATE / BRAND NAME NOT SPECIFIED
     Route: 065
  8. POTASSIUM CHLORIDE [Concomitant]
     Active Substance: POTASSIUM CHLORIDE
     Indication: Product used for unknown indication
     Dosage: POTASSIUM CHLORIDE DRINK 75MG/ML (1MMOL/ML) / BRAND NAME NOT SPECIFIED
     Route: 065
  9. AMYLA/LIPA/PROTEA [Concomitant]
     Indication: Product used for unknown indication
     Dosage: 18000/25000/1000 FE, AMYLA/LIPA/PROTEA CA MSR (CREO F+25000/GEN/PANTRI) / BRAND NAME NOT SPECIFIED
     Route: 065
  10. MOVICOLON [Concomitant]
     Active Substance: POLYETHYLENE GLYCOL 3350\POTASSIUM CHLORIDE\SODIUM BICARBONATE\SODIUM CHLORIDE
     Indication: Product used for unknown indication
     Dosage: POWDER FOR DRINK,MACROGOL/SALTS PDR V DRINK (MOVIC/MOLAX/GEN) / MOVICOLON POWDER FOR DRINK IN SACHET
     Route: 065

REACTIONS (2)
  - Hallucination [Recovered/Resolved]
  - Nightmare [Not Recovered/Not Resolved]
